FAERS Safety Report 9733901 (Version 1)
Quarter: 2013Q4

REPORT INFORMATION
  Report Type: Spontaneous
  Country: FR (occurrence: FR)
  Receive Date: 20131205
  Receipt Date: 20131205
  Transmission Date: 20140711
  Serious: Yes (Hospitalization)
  Sender: FDA-Public Use
  Company Number: FR-PFIZER INC-2013342553

PATIENT
  Age: 43 Year
  Sex: Male

DRUGS (7)
  1. ANSATIPINE [Suspect]
     Indication: ATYPICAL MYCOBACTERIAL INFECTION
     Dosage: 300 MG, DAILY
     Route: 048
     Dates: start: 20130607, end: 20130805
  2. DEXAMBUTOL [Suspect]
     Indication: ATYPICAL MYCOBACTERIAL INFECTION
     Dosage: 1000 MG, DAILY
     Route: 048
     Dates: start: 20130607, end: 20130805
  3. ZECLAR [Suspect]
     Indication: ATYPICAL MYCOBACTERIAL INFECTION
     Dosage: 500 MG, IN THE MORNING AND IN THE EVENING
     Route: 048
     Dates: start: 20130607, end: 20130805
  4. FORADIL [Concomitant]
     Dosage: 1 DF, 3X/DAY
  5. FLIXOTIDE ^ALLEN + HANBURYS^ [Concomitant]
     Dosage: 2 DF, 3X/DAY
  6. CORTANCYL [Concomitant]
     Dosage: 6 MG, DAILY
  7. ZITHROMAX [Concomitant]
     Dosage: 1 DF, 3X/WEEK

REACTIONS (3)
  - Cholestasis [Recovered/Resolved]
  - Hepatocellular injury [Recovered/Resolved]
  - Rash [Recovered/Resolved]
